FAERS Safety Report 7867834-2 (Version None)
Quarter: 2011Q4

REPORT INFORMATION
  Report Type: 
  Country: None (occurrence: None)
  Receive Date: 20111028
  Receipt Date: 20111026
  Transmission Date: 20120403
  Serious: Yes (Death, Hospitalization)
  Sender: FDA-Public Use
  Company Number: US-VERTEX PHARMACEUTICALS INC.-AE-2011-002671

PATIENT
  Age: 59 Year
  Sex: Male

DRUGS (5)
  1. RIBAVIRIN [Concomitant]
     Indication: HEPATITIS C
     Dates: start: 20111007
  2. ZOLOFT [Concomitant]
     Indication: DEPRESSION
  3. INCIVEK [Suspect]
     Indication: HEPATITIS C
     Dates: start: 20111007
  4. OMEPRAZOLE [Concomitant]
  5. PEGASYS [Concomitant]
     Indication: HEPATITIS C
     Dates: start: 20111007

REACTIONS (7)
  - RHABDOMYOLYSIS [None]
  - PULMONARY OEDEMA [None]
  - FATIGUE [None]
  - MULTI-ORGAN FAILURE [None]
  - BLOOD GLUCOSE ABNORMAL [None]
  - BLOOD CREATININE INCREASED [None]
  - DEHYDRATION [None]
